FAERS Safety Report 15734983 (Version 3)
Quarter: 2019Q2

REPORT INFORMATION
  Report Type: Spontaneous
  Country: US (occurrence: US)
  Receive Date: 20181218
  Receipt Date: 20190410
  Transmission Date: 20190711
  Serious: Yes (Disabling, Other)
  Sender: FDA-Public Use
  Company Number: US-PFIZER INC-2018070828

PATIENT
  Age: 73 Year
  Sex: Female
  Weight: 62 kg

DRUGS (22)
  1. XELJANZ [Suspect]
     Active Substance: TOFACITINIB CITRATE
     Dosage: 5 MG, 2X/DAY (TAKE 1 TABLET BY MOUTH TWICE A DAY AS DIRECTED BY PHYSICIAN)
     Route: 048
  2. NIFEDIPINE. [Concomitant]
     Active Substance: NIFEDIPINE
     Dosage: 60 MG, DAILY
     Route: 048
     Dates: start: 20170424
  3. SIMVASTATIN. [Concomitant]
     Active Substance: SIMVASTATIN
     Dosage: 20 MG, DAILY (TAKE 1 TABLET BY ORAL ROUTE EVERY DAY)
     Route: 048
     Dates: start: 20131111
  4. CITRACAL + D3 (CALCIUM PHOSPHATE) [Concomitant]
     Dosage: UNK UNK, DAILY (250 MG CALCIUM-500 UNIT CHEW TABLET MAGNESIUM 250 MG TABLET)
     Route: 048
     Dates: start: 20181211
  5. SPIRONOLACTONE. [Concomitant]
     Active Substance: SPIRONOLACTONE
     Dosage: 50 MG, DAILY (TAKE 1 TABLET BY ORAL ROUTE EVERY DAY)
     Route: 048
     Dates: start: 20170424
  6. ELIQUIS [Concomitant]
     Active Substance: APIXABAN
     Dosage: UNK
  7. VITAMIN D3 [Concomitant]
     Active Substance: CHOLECALCIFEROL
     Dosage: 2000 IU, UNK (TAKE 2 BY ORAL ROUTE)
     Route: 048
     Dates: start: 20130904
  8. PROLIA [Concomitant]
     Active Substance: DENOSUMAB
     Dosage: 1 ML, UNK(1 MILLILITER BY SUBCUTANEOUS ROUTE EVERY 6 MONTHS IN THE UPPER ARM, UPPER THIGH OR ABDOMEN
     Route: 058
     Dates: start: 20130904
  9. TYLENOL [Concomitant]
     Active Substance: ACETAMINOPHEN
     Dosage: UNK UNK, AS NEEDED (TAKE AS NEEDED 1 TABLET BY ORAL ROUTE EVERY 4 HOURS AS NEEDED)
     Route: 048
     Dates: start: 20140519
  10. TIROSINT [Concomitant]
     Active Substance: LEVOTHYROXINE SODIUM
     Dosage: 50 UG, DAILY(TAKE 1 CAPSULE BY ORAL ROUTE)
     Route: 048
     Dates: start: 20180228
  11. XELJANZ [Suspect]
     Active Substance: TOFACITINIB CITRATE
     Indication: ARTHRITIS
     Dosage: 10 MG, 2X/DAY
     Route: 048
     Dates: start: 2015
  12. OMEPRAZOLE. [Concomitant]
     Active Substance: OMEPRAZOLE
     Indication: GASTROOESOPHAGEAL REFLUX DISEASE
     Dosage: 40 MG, DAILY (TAKE 2 CAPSULE BY ORAL ROUTE EVERY DAY BEFORE A MEAL)
     Route: 048
     Dates: start: 20130904
  13. XELJANZ [Suspect]
     Active Substance: TOFACITINIB CITRATE
     Dosage: 5 MG, 2X/DAY (TAKE 1 TABLET BY MOUTH TWICE A DAY AS DIRECTED BY PHYSICIAN)
     Route: 048
     Dates: start: 20181211
  14. FLECAINIDE [Concomitant]
     Active Substance: FLECAINIDE
     Dosage: 25 MG, 2X/DAY (1/2 TABLET 2 X DAILY)
     Dates: start: 20140519
  15. LISINOPRIL. [Concomitant]
     Active Substance: LISINOPRIL
     Dosage: 40 MG, DAILY (TAKE 1 TABLET BY ORAL ROUTE EVERY DAY)
     Route: 048
     Dates: start: 20170424
  16. TIROSINT [Concomitant]
     Active Substance: LEVOTHYROXINE SODIUM
     Dosage: 50 UG, DAILY(TAKE 1 CAPSULE BY ORAL ROUTE)
     Route: 048
     Dates: start: 20170424
  17. XELJANZ [Suspect]
     Active Substance: TOFACITINIB CITRATE
     Indication: RHEUMATOID ARTHRITIS
     Dosage: 5 MG, UNK
     Route: 048
  18. WARFARIN [Concomitant]
     Active Substance: WARFARIN
     Indication: ATRIAL FIBRILLATION
     Dosage: UNK
     Dates: start: 20180117
  19. MAGNESIUM [Concomitant]
     Active Substance: MAGNESIUM
     Dosage: 500 MG, DAILY
  20. WARFARIN [Concomitant]
     Active Substance: WARFARIN
     Dosage: 6 MG, DAILY (TAKE 1 TABLET BY ORAL ROUTE EVERY DAY)
     Dates: start: 20170424
  21. MULTI-DAY TABLET [Concomitant]
     Dosage: 1 DF, DAILY (: TAKE 1 BY ORAL ROUTE EVERY DAY)
     Route: 048
     Dates: start: 20140519
  22. SPIRONOLACTONE. [Concomitant]
     Active Substance: SPIRONOLACTONE
     Dosage: 50 MG, DAILY (TAKE 1 TABLET BY ORAL ROUTE EVERY DAY)
     Route: 048
     Dates: start: 20180228

REACTIONS (8)
  - Condition aggravated [Unknown]
  - Parathyroid tumour benign [Recovered/Resolved]
  - Calcinosis [Recovered/Resolved]
  - Blood parathyroid hormone increased [Recovered/Resolved]
  - Loss of personal independence in daily activities [Recovered/Resolved]
  - Parathyroid tumour [Recovered/Resolved]
  - Blood calcium increased [Recovered/Resolved]
  - Hepatic steatosis [Unknown]

NARRATIVE: CASE EVENT DATE: 2018
